FAERS Safety Report 10723235 (Version 1)
Quarter: 2015Q1

REPORT INFORMATION
  Report Type: Spontaneous
  Country: US (occurrence: US)
  Receive Date: 20150120
  Receipt Date: 20150120
  Transmission Date: 20150721
  Serious: Yes (Other)
  Sender: FDA-Public Use
  Company Number: US-ENDO PHARMACEUTICALS INC.-RISP20140002

PATIENT
  Age: 67 Year
  Sex: Male

DRUGS (1)
  1. RISPERIDONE TABLETS [Suspect]
     Active Substance: RISPERIDONE
     Indication: DEMENTIA
     Dosage: UNKNOWN
     Route: 048
     Dates: start: 201306, end: 2013

REACTIONS (2)
  - Parkinson^s disease [Not Recovered/Not Resolved]
  - Muscle spasms [Recovered/Resolved]

NARRATIVE: CASE EVENT DATE: 2013
